FAERS Safety Report 17554756 (Version 1)
Quarter: 2020Q1

REPORT INFORMATION
  Report Type: Spontaneous
  Country: JP (occurrence: JP)
  Receive Date: 20200318
  Receipt Date: 20200318
  Transmission Date: 20200409
  Serious: Yes (Other)
  Sender: FDA-Public Use
  Company Number: JP-TEVA-2020-JP-002386J

PATIENT
  Sex: Male

DRUGS (1)
  1. CERCINE [Suspect]
     Active Substance: DIAZEPAM
     Indication: ALCOHOL WITHDRAWAL SYNDROME
     Route: 048

REACTIONS (4)
  - Product use issue [Unknown]
  - Bradycardia [Unknown]
  - Atrioventricular block [Unknown]
  - Product use in unapproved indication [Unknown]
